FAERS Safety Report 19117409 (Version 1)
Quarter: 2021Q2

REPORT INFORMATION
  Report Type: Spontaneous
  Country: ES (occurrence: ES)
  Receive Date: 20210409
  Receipt Date: 20210409
  Transmission Date: 20210717
  Serious: Yes (Life-Threatening)
  Sender: FDA-Public Use
  Company Number: ES-TEVA-2021-ES-1897614

PATIENT
  Age: 26 Year
  Sex: Male
  Weight: 86 kg

DRUGS (1)
  1. ZOLPIDEM RATIOPHARM 10 MG COMPRIMIDOS RECUBIERTOS EFG , 30 COMPRIMIDOS [Suspect]
     Active Substance: ZOLPIDEM TARTRATE
     Indication: INSOMNIA
     Dosage: 20 MILLIGRAM DAILY; 20 MG AT NIGHT
     Route: 048
     Dates: start: 20210308, end: 20210309

REACTIONS (1)
  - Disorientation [Recovering/Resolving]

NARRATIVE: CASE EVENT DATE: 20210308
